FAERS Safety Report 18734061 (Version 1)
Quarter: 2021Q1

REPORT INFORMATION
  Report Type: Spontaneous
  Country: US (occurrence: US)
  Receive Date: 20210113
  Receipt Date: 20210113
  Transmission Date: 20210419
  Serious: Yes (Other)
  Sender: FDA-Public Use
  Company Number: US-CIPLA LTD.-2021US00091

PATIENT

DRUGS (4)
  1. BUDESONIDE. [Suspect]
     Active Substance: BUDESONIDE
     Indication: PULMONARY CONGESTION
     Dosage: UNK, ONE PACKET, BID
     Dates: start: 2020
  2. BUDESONIDE. [Suspect]
     Active Substance: BUDESONIDE
     Indication: ASTHMA
     Dosage: UNK, USED 4 BOXES ALREADY
     Dates: start: 202010
  3. BROVANA [Suspect]
     Active Substance: ARFORMOTEROL TARTRATE
     Indication: ASTHMA
     Dosage: 15 MCG/2 ML, TWICE A DAY
     Route: 065
     Dates: start: 202010
  4. BUDESONIDE. [Suspect]
     Active Substance: BUDESONIDE
     Dosage: UNK, ONE PACKET, BID
     Dates: start: 2020

REACTIONS (5)
  - Allergic respiratory disease [Unknown]
  - Condition aggravated [Unknown]
  - Pulmonary congestion [Unknown]
  - Liquid product physical issue [Unknown]
  - Product use issue [Unknown]

NARRATIVE: CASE EVENT DATE: 2020
